FAERS Safety Report 7946961-5 (Version None)
Quarter: 2011Q4

REPORT INFORMATION
  Report Type: 
  Country: None (occurrence: None)
  Receive Date: 20111129
  Receipt Date: 20100826
  Transmission Date: 20120403
  Serious: Yes (Hospitalization, Other)
  Sender: FDA-Public Use
  Company Number: PHHY2011TW15278

PATIENT
  Sex: Female

DRUGS (3)
  1. GLEEVEC [Suspect]
     Indication: CHRONIC MYELOID LEUKAEMIA
     Dosage: 300 MG, DAILY
     Route: 048
  2. GLEEVEC [Suspect]
     Dosage: 400 MG, ONE TIME IN THE EVENING
  3. GLEEVEC [Suspect]
     Dosage: 300 MG, PER DAY

REACTIONS (9)
  - NAUSEA [None]
  - ASTHENIA [None]
  - FATIGUE [None]
  - DIZZINESS [None]
  - BLOOD GLUCOSE INCREASED [None]
  - URINARY TRACT INFECTION [None]
  - VOMITING [None]
  - WHITE BLOOD CELL COUNT INCREASED [None]
  - FALL [None]
